FAERS Safety Report 14352986 (Version 1)
Quarter: 2018Q1

REPORT INFORMATION
  Report Type: Spontaneous
  Country: US (occurrence: US)
  Receive Date: 20180104
  Receipt Date: 20180104
  Transmission Date: 20180509
  Serious: Yes (Other)
  Sender: FDA-Public Use
  Company Number: US-CELGENEUS-USA-20171211303

PATIENT
  Sex: Male

DRUGS (1)
  1. POMALYST [Suspect]
     Active Substance: POMALIDOMIDE
     Indication: PLASMA CELL MYELOMA
     Dosage: 2 MILLIGRAM
     Route: 048
     Dates: start: 20171109

REACTIONS (6)
  - Atrial fibrillation [Unknown]
  - Pollakiuria [Unknown]
  - Constipation [Unknown]
  - Urinary retention [Unknown]
  - Hypoaesthesia [Unknown]
  - Fatigue [Unknown]
